FAERS Safety Report 21410431 (Version 1)
Quarter: 2022Q4

REPORT INFORMATION
  Report Type: Report from Study
  Country: BR (occurrence: BR)
  Receive Date: 20221005
  Receipt Date: 20221005
  Transmission Date: 20230112
  Serious: Yes (Other)
  Sender: FDA-Public Use
  Company Number: BR-NOVARTISPH-NVSC2021BR192502

PATIENT
  Age: 57 Year
  Sex: Female

DRUGS (6)
  1. COSENTYX [Suspect]
     Active Substance: SECUKINUMAB
     Indication: Psoriatic arthropathy
     Dosage: 300 MG, UNKNOWN
     Route: 065
     Dates: start: 20181217
  2. COSENTYX [Suspect]
     Active Substance: SECUKINUMAB
     Dosage: UNK
     Route: 065
     Dates: start: 20210818
  3. COSENTYX [Suspect]
     Active Substance: SECUKINUMAB
     Dosage: UNK
     Route: 065
     Dates: start: 20211115
  4. COSENTYX [Suspect]
     Active Substance: SECUKINUMAB
     Dosage: UNK
     Route: 065
     Dates: start: 20220615
  5. COSENTYX [Suspect]
     Active Substance: SECUKINUMAB
     Dosage: 300 MG
     Route: 065
  6. COSENTYX [Suspect]
     Active Substance: SECUKINUMAB
     Dosage: UNK (DOSE: 2, START DATE: 3 OR 4 YEARS AGO)
     Route: 065

REACTIONS (20)
  - Angina pectoris [Unknown]
  - Depressive symptom [Recovering/Resolving]
  - Dyspepsia [Unknown]
  - Fear of injection [Unknown]
  - Malaise [Unknown]
  - Oropharyngeal pain [Recovered/Resolved]
  - Dizziness [Recovered/Resolved]
  - Somnolence [Recovered/Resolved]
  - Influenza [Recovered/Resolved]
  - Oropharyngeal pain [Unknown]
  - Dyspnoea [Recovered/Resolved]
  - Macule [Not Recovered/Not Resolved]
  - Musculoskeletal pain [Unknown]
  - Cardiac disorder [Unknown]
  - Viral infection [Recovered/Resolved]
  - Panic attack [Unknown]
  - Blood pressure increased [Unknown]
  - Pain of skin [Unknown]
  - Chest pain [Unknown]
  - Breast pain [Recovering/Resolving]

NARRATIVE: CASE EVENT DATE: 20181217
